FAERS Safety Report 25745842 (Version 1)
Quarter: 2025Q3

REPORT INFORMATION
  Report Type: Spontaneous
  Country: US (occurrence: US)
  Receive Date: 20250901
  Receipt Date: 20250901
  Transmission Date: 20251021
  Serious: Yes (Hospitalization, Other)
  Sender: STRIDES
  Company Number: US-STRIDES ARCOLAB LIMITED-2025SP010978

PATIENT
  Age: 31 Year
  Sex: Female

DRUGS (1)
  1. COLCHICINE [Suspect]
     Active Substance: COLCHICINE
     Indication: Product used for unknown indication
     Route: 065

REACTIONS (10)
  - Lactic acidosis [Recovered/Resolved]
  - Myalgia [Recovered/Resolved]
  - Multiple organ dysfunction syndrome [Recovering/Resolving]
  - Gastrointestinal toxicity [Recovering/Resolving]
  - Leukocytosis [Unknown]
  - Neutropenia [Recovered/Resolved]
  - Thrombocytopenia [Recovered/Resolved]
  - Rhabdomyolysis [Unknown]
  - Overdose [Unknown]
  - Toxicity to various agents [Unknown]
